FAERS Safety Report 8266274-4 (Version None)
Quarter: 2012Q1

REPORT INFORMATION
  Report Type: 
  Country: None (occurrence: None)
  Receive Date: 20120327
  Receipt Date: 20100504
  Transmission Date: 20120608
  Serious: Yes (Hospitalization)
  Sender: FDA-Public Use
  Company Number: PHHY2010US26848

PATIENT
  Age: 76 Year
  Sex: Male

DRUGS (1)
  1. GLEEVEC [Suspect]
     Indication: SMALL INTESTINE CARCINOMA
     Dosage: 400 MG, DAILY, ORAL
     Dates: start: 20100401

REACTIONS (1)
  - TUMOUR NECROSIS [None]
